FAERS Safety Report 26007897 (Version 1)
Quarter: 2025Q4

REPORT INFORMATION
  Report Type: Spontaneous
  Country: EU (occurrence: EU)
  Receive Date: 20251106
  Receipt Date: 20251106
  Transmission Date: 20260118
  Serious: Yes (Death, Other)
  Sender: JAZZ
  Company Number: EU-JAZZ PHARMACEUTICALS-2025-AT-025138

PATIENT
  Age: 17 Year

DRUGS (1)
  1. CANNABIDIOL [Suspect]
     Active Substance: CANNABIDIOL
     Indication: Tuberous sclerosis complex
     Dosage: UNK

REACTIONS (4)
  - Sudden unexplained death in epilepsy [Fatal]
  - Cardiac arrest [Fatal]
  - Seizure [Unknown]
  - Pancreatic neuroendocrine tumour [Unknown]

NARRATIVE: CASE EVENT DATE: 20241201
